FAERS Safety Report 6850277-8 (Version None)
Quarter: 2010Q3

REPORT INFORMATION
  Report Type: 
  Country: None (occurrence: None)
  Receive Date: 20100716
  Receipt Date: 20071016
  Transmission Date: 20110219
  Serious: No
  Sender: FDA-Public Use
  Company Number: US-PFIZER INC-2007086562

PATIENT
  Sex: Male
  Weight: 95.4 kg

DRUGS (7)
  1. CHANTIX [Suspect]
     Indication: SMOKING CESSATION THERAPY
  2. ZYPREXA [Concomitant]
  3. SEROQUEL [Concomitant]
  4. KLONOPIN [Concomitant]
  5. ANALGESICS [Concomitant]
  6. CELEBREX [Concomitant]
  7. ZANTAC [Concomitant]

REACTIONS (3)
  - ABDOMINAL DISCOMFORT [None]
  - GASTROOESOPHAGEAL REFLUX DISEASE [None]
  - NAUSEA [None]
